FAERS Safety Report 8350142-3 (Version None)
Quarter: 2012Q2

REPORT INFORMATION
  Report Type: 
  Country: None (occurrence: None)
  Receive Date: 20120510
  Receipt Date: 20120504
  Transmission Date: 20120825
  Serious: Yes (Other)
  Sender: FDA-Public Use
  Company Number: US-BAYER-2011-122456

PATIENT
  Age: 31 Year
  Sex: Female

DRUGS (11)
  1. TRAMADOL HYDROCHLORIDE [Concomitant]
     Indication: PAIN
     Dosage: 37.5-325 MG, 1-2 EVERY 6 HOURS AS NEEDED, 03-DEC-2009
     Route: 048
  2. FLEXERIL [Concomitant]
     Dosage: 10 MG, 1 EVERY 8 HOURS AS NEEDED, 03-DEC-2009
     Route: 048
  3. YAZ [Suspect]
     Indication: ACNE
     Dates: start: 20091001
  4. CHANTIX [Concomitant]
     Dosage: 0.5/1 MG. DISPENSED 03-SEP-2009
     Route: 048
  5. VALTREX [Concomitant]
     Dosage: 500 MG, DISPENSED 14-MAY-2009 TO 23-DEC-2009
     Route: 048
  6. BISOPROLOL FUMARATE [Concomitant]
     Dosage: DISPENSED 13-JUN-2008 TO 08-OCT-2009
     Route: 048
  7. RISPERIDONE [Concomitant]
     Dosage: 2 MG, UNK DISPENSED 04-MAY-2009 TO 02-NOV-2009
     Route: 048
  8. DEXTRO/AMPH SALT XR [Concomitant]
     Dosage: 20 MG, UNK
  9. STRATTERA [Concomitant]
     Dosage: 80 MG, DISPENSED 08-OCT-2009
     Route: 048
  10. FLUOXETINE [Concomitant]
     Dosage: 20 MG, UNK
  11. ULTRACET [Concomitant]
     Indication: PAIN
     Dosage: UNK UNK, PRN

REACTIONS (2)
  - PAIN [None]
  - PULMONARY EMBOLISM [None]
